FAERS Safety Report 7815238 (Version 3)
Quarter: 2014Q3

REPORT INFORMATION
  Report Type: Spontaneous
  Country: US (occurrence: US)
  Receive Date: 20110216
  Receipt Date: 20140806
  Transmission Date: 20150326
  Serious: Yes (Hospitalization, Other)
  Sender: FDA-Public Use
  Company Number: US-BAYER-2011-014532

PATIENT
  Age: 19 Year
  Sex: Female
  Weight: 91.16 kg

DRUGS (13)
  1. CLARITIN [Concomitant]
     Active Substance: LORATADINE
     Dosage: SEASONALLY
     Dates: start: 20071201
  2. ZOFRAN [Concomitant]
     Active Substance: ONDANSETRON HYDROCHLORIDE
  3. YAZ [Suspect]
     Active Substance: DROSPIRENONE\ETHINYL ESTRADIOL
  4. SUDAFED [Concomitant]
     Active Substance: PSEUDOEPHEDRINE HYDROCHLORIDE
     Dosage: SEASONALLY
     Dates: start: 20091201
  5. ANEXSIA [Concomitant]
     Active Substance: ACETAMINOPHEN\HYDROCODONE BITARTRATE
     Dosage: 5-325 MG PRN EVERY 4-6 HOURS
     Dates: start: 20091207
  6. COMPAZINE [Concomitant]
     Active Substance: PROCHLORPERAZINE MALEATE
  7. ALBUTEROL. [Concomitant]
     Active Substance: ALBUTEROL
     Dosage: AS NEEDED
     Dates: start: 20091201
  8. TORADOL [Concomitant]
     Active Substance: KETOROLAC TROMETHAMINE
  9. REGLAN [Concomitant]
     Active Substance: METOCLOPRAMIDE HYDROCHLORIDE
  10. VENTOLIN HFA [Concomitant]
     Active Substance: ALBUTEROL SULFATE
  11. DIAMOX SEQUELS [Concomitant]
     Active Substance: ACETAZOLAMIDE
     Dosage: 250 MG, BID
     Dates: start: 20091207
  12. BENADRYL [Concomitant]
     Active Substance: DIPHENHYDRAMINE HYDROCHLORIDE
  13. VICODIN [Concomitant]
     Active Substance: ACETAMINOPHEN\HYDROCODONE BITARTRATE

REACTIONS (8)
  - Anxiety [None]
  - Injury [None]
  - Transverse sinus thrombosis [Recovered/Resolved]
  - General physical health deterioration [None]
  - Pain [None]
  - Superior sagittal sinus thrombosis [Recovered/Resolved]
  - Thrombosis [None]
  - Emotional distress [None]

NARRATIVE: CASE EVENT DATE: 20091207
